FAERS Safety Report 6983007-X (Version None)
Quarter: 2010Q3

REPORT INFORMATION
  Report Type: 
  Country: None (occurrence: None)
  Receive Date: 20100914
  Receipt Date: 20100527
  Transmission Date: 20110219
  Serious: No
  Sender: FDA-Public Use
  Company Number: US-PFIZER INC-2010067614

PATIENT
  Sex: Male
  Weight: 81.633 kg

DRUGS (5)
  1. LYRICA [Suspect]
     Indication: ARTHRITIS
     Dosage: 150 MG, 2X/DAY
     Route: 048
     Dates: start: 20080101, end: 20090101
  2. LYRICA [Suspect]
     Dosage: 300 MG, 2X/DAY
     Route: 048
     Dates: start: 20100201, end: 20100501
  3. LEXAPRO [Concomitant]
     Indication: DEPRESSION
     Dosage: UNK
  4. WELLBUTRIN [Concomitant]
     Indication: DEPRESSION
     Dosage: UNK
  5. TYLENOL [Concomitant]
     Dosage: UNK

REACTIONS (10)
  - ASTHENIA [None]
  - CONFUSIONAL STATE [None]
  - DISTURBANCE IN ATTENTION [None]
  - DIZZINESS [None]
  - FATIGUE [None]
  - MUSCLE SPASMS [None]
  - MYALGIA [None]
  - PAIN [None]
  - PARAESTHESIA [None]
  - TREMOR [None]
